FAERS Safety Report 4478044-3 (Version None)
Quarter: 2004Q3

REPORT INFORMATION
  Report Type: 
  Country: None (occurrence: None)
  Receive Date: 20040923
  Receipt Date: 20040614
  Transmission Date: 20050211
  Serious: No
  Sender: FDA-Public Use
  Company Number: USA040670144

PATIENT
  Age: 47 Year
  Sex: Female

DRUGS (7)
  1. FORTEO [Suspect]
     Indication: OSTEOPOROSIS
     Dosage: 20 UG DAY
     Dates: start: 20040601
  2. ALLERGY MEDICATION [Concomitant]
  3. MULTI-VITAMIN [Concomitant]
  4. VITAMIN C [Concomitant]
  5. VITAMIN B NOS [Concomitant]
  6. VITAMIN E [Concomitant]
  7. CALCIUM [Concomitant]

REACTIONS (3)
  - CHANGE OF BOWEL HABIT [None]
  - DYSPEPSIA [None]
  - WEIGHT INCREASED [None]
